FAERS Safety Report 6095528-5 (Version None)
Quarter: 2009Q1

REPORT INFORMATION
  Report Type: 
  Country: None (occurrence: None)
  Receive Date: 20090227
  Receipt Date: 20080421
  Transmission Date: 20090719
  Serious: No
  Sender: FDA-Public Use
  Company Number: A0723881A

PATIENT
  Age: 27 Year
  Sex: Female

DRUGS (3)
  1. LAMICTAL [Suspect]
     Dosage: 100MG PER DAY
     Route: 048
     Dates: start: 20080101, end: 20080101
  2. EFFEXOR XR [Concomitant]
  3. ADDERALL 10 [Concomitant]

REACTIONS (3)
  - NIGHTMARE [None]
  - PRURITUS [None]
  - RASH [None]
